FAERS Safety Report 17561688 (Version 4)
Quarter: 2022Q2

REPORT INFORMATION
  Report Type: Spontaneous
  Country: VN (occurrence: VN)
  Receive Date: 20200319
  Receipt Date: 20220407
  Transmission Date: 20220721
  Serious: Yes (Hospitalization)
  Sender: FDA-Public Use
  Company Number: VN-JNJFOC-20200313117

PATIENT
  Age: 39 Year
  Sex: Male

DRUGS (1)
  1. SIMPONI [Suspect]
     Active Substance: GOLIMUMAB
     Indication: Ankylosing spondylitis
     Route: 058
     Dates: start: 201912

REACTIONS (3)
  - Polycythaemia [Recovered/Resolved]
  - Headache [Recovered/Resolved]
  - Papilloma viral infection [Recovered/Resolved]

NARRATIVE: CASE EVENT DATE: 20200101
